FAERS Safety Report 7079783-0 (Version None)
Quarter: 2010Q4

REPORT INFORMATION
  Report Type: 
  Country: None (occurrence: None)
  Receive Date: 20101102
  Receipt Date: 20101026
  Transmission Date: 20110411
  Serious: Yes (Disabling, Other)
  Sender: FDA-Public Use
  Company Number: US-PFIZER INC-2010082191

PATIENT
  Sex: Female
  Weight: 90.703 kg

DRUGS (1)
  1. SUTENT [Suspect]
     Indication: METASTATIC RENAL CELL CARCINOMA
     Dosage: 50 MG, DAILY, 4 WEEKS ON AND 2 WEEK OFF
     Route: 048
     Dates: start: 20100624

REACTIONS (4)
  - BLOOD PRESSURE INCREASED [None]
  - CHROMATURIA [None]
  - HAEMATURIA [None]
  - NEUROPATHY PERIPHERAL [None]
